FAERS Safety Report 10664587 (Version 2)
Quarter: 2015Q4

REPORT INFORMATION
  Report Type: Spontaneous
  Country: US (occurrence: US)
  Receive Date: 20141219
  Receipt Date: 20151006
  Transmission Date: 20160304
  Serious: Yes (Other)
  Sender: FDA-Public Use
  Company Number: US-AMGEN-USASP2014098219

PATIENT
  Age: 68 Year
  Sex: Female

DRUGS (2)
  1. MIACALCIN [Concomitant]
     Active Substance: CALCITONIN SALMON
     Dosage: UNK
  2. PROLIA [Suspect]
     Active Substance: DENOSUMAB
     Indication: OSTEOPOROSIS POSTMENOPAUSAL
     Dosage: UNK
     Route: 065
     Dates: start: 201304

REACTIONS (5)
  - Swelling face [Unknown]
  - Osteonecrosis of jaw [Unknown]
  - Poor personal hygiene [Unknown]
  - Cellulitis [Unknown]
  - Malnutrition [Unknown]

NARRATIVE: CASE EVENT DATE: 201412
